FAERS Safety Report 8204364-2 (Version None)
Quarter: 2012Q1

REPORT INFORMATION
  Report Type: 
  Country: None (occurrence: None)
  Receive Date: 20120313
  Receipt Date: 20120313
  Transmission Date: 20120608
  Serious: Yes (Death)
  Sender: FDA-Public Use
  Company Number: None

PATIENT
  Age: 72 Year
  Sex: Female
  Weight: 55.9 kg

DRUGS (2)
  1. FONDAPARINUX SODIUM [Suspect]
     Indication: THROMBOSIS PROPHYLAXIS
     Dosage: 2.5 MG
     Route: 058
  2. CLOPIDOGREL [Concomitant]
     Indication: CORONARY ARTERY DISEASE
     Dosage: 75 MG
     Route: 048

REACTIONS (6)
  - PNEUMOTHORAX [None]
  - CARDIO-RESPIRATORY ARREST [None]
  - BRADYCARDIA [None]
  - EPISTAXIS [None]
  - HYPOTENSION [None]
  - PULSELESS ELECTRICAL ACTIVITY [None]
